FAERS Safety Report 18525906 (Version 1)
Quarter: 2020Q4

REPORT INFORMATION
  Report Type: Spontaneous
  Country: HU (occurrence: HU)
  Receive Date: 20201120
  Receipt Date: 20201120
  Transmission Date: 20210114
  Serious: Yes (Other)
  Sender: FDA-Public Use
  Company Number: HU-CELLTRION INC.-2020HU032280

PATIENT

DRUGS (1)
  1. RITUXIMAB (UNKNOWN) [Suspect]
     Active Substance: RITUXIMAB
     Indication: RETROPERITONEAL FIBROSIS
     Dosage: INDUCTION THERAPY

REACTIONS (8)
  - Neoplasm malignant [Unknown]
  - Red blood cell sedimentation rate increased [Unknown]
  - C-reactive protein increased [Unknown]
  - Renal impairment [Unknown]
  - Anaemia [Unknown]
  - Off label use [Unknown]
  - Autoimmune disorder [Unknown]
  - Hypersensitivity [Unknown]
